FAERS Safety Report 17343275 (Version 1)
Quarter: 2020Q1

REPORT INFORMATION
  Report Type: Spontaneous
  Country: US (occurrence: US)
  Receive Date: 20200129
  Receipt Date: 20200129
  Transmission Date: 20200409
  Serious: No
  Sender: FDA-Public Use
  Company Number: US-ALLERGAN-1908165US

PATIENT
  Sex: Female

DRUGS (3)
  1. BOTOX COSMETIC [Suspect]
     Active Substance: ONABOTULINUMTOXINA
     Indication: SKIN WRINKLING
     Dosage: 30 UNITS, SINGLE
     Route: 030
     Dates: start: 20190227, end: 20190227
  2. BOTOX COSMETIC [Suspect]
     Active Substance: ONABOTULINUMTOXINA
     Indication: SKIN WRINKLING
  3. BOTOX COSMETIC [Suspect]
     Active Substance: ONABOTULINUMTOXINA
     Indication: SKIN WRINKLING

REACTIONS (8)
  - Feeling hot [Not Recovered/Not Resolved]
  - Dyspnoea [Recovered/Resolved]
  - Muscle rigidity [Recovering/Resolving]
  - Dysarthria [Recovering/Resolving]
  - Paraesthesia [Recovering/Resolving]
  - Erythema [Recovering/Resolving]
  - Pallor [Recovering/Resolving]
  - Opisthotonus [Recovering/Resolving]

NARRATIVE: CASE EVENT DATE: 20190227
